FAERS Safety Report 20346213 (Version 1)
Quarter: 2022Q1

REPORT INFORMATION
  Report Type: Spontaneous
  Country: US (occurrence: None)
  Receive Date: 20220115
  Receipt Date: 20220115
  Transmission Date: 20220423
  Serious: Yes (Other)
  Sender: FDA-Public Use
  Company Number: None

PATIENT
  Age: 27 Year
  Sex: Female
  Weight: 54.43 kg

DRUGS (1)
  1. NEXPLANON [Suspect]
     Active Substance: ETONOGESTREL

REACTIONS (8)
  - Post-traumatic stress disorder [None]
  - Menometrorrhagia [None]
  - Suicide attempt [None]
  - Bedridden [None]
  - Asthenia [None]
  - Haemorrhoids [None]
  - Loss of consciousness [None]
  - Sexual dysfunction [None]

NARRATIVE: CASE EVENT DATE: 20210825
